FAERS Safety Report 17755226 (Version 1)
Quarter: 2020Q2

REPORT INFORMATION
  Report Type: Spontaneous
  Country: NL (occurrence: NL)
  Receive Date: 20200507
  Receipt Date: 20200507
  Transmission Date: 20200714
  Serious: Yes (Other)
  Sender: FDA-Public Use
  Company Number: PHHY2016NL063178

PATIENT
  Sex: Male
  Weight: 55 kg

DRUGS (6)
  1. METHYLFENIDAAT HCL SANDOZ [Suspect]
     Active Substance: METHYLPHENIDATE HYDROCHLORIDE
     Dosage: 10 UG, Q12H
     Route: 048
     Dates: start: 2015, end: 20190720
  2. PIPAMPERONE SANDOZ [Suspect]
     Active Substance: PIPAMPERONE
     Indication: BIPOLAR I DISORDER
     Dosage: 10 MG, QID 4X10 MG PER DAG
     Route: 048
     Dates: start: 2008
  3. FLIXOTAIDE [Concomitant]
     Active Substance: FLUTICASONE PROPIONATE
     Indication: PRODUCT USED FOR UNKNOWN INDICATION
     Dosage: 1000 DF, QD 1 PUFJE PER DAG
     Route: 055
     Dates: start: 2010
  4. IPRATROPIUM BROMIDE W/SALBUTAMOL [Concomitant]
     Active Substance: ALBUTEROL\IPRATROPIUM BROMIDE
     Indication: PRODUCT USED FOR UNKNOWN INDICATION
     Dosage: 1 DF, INDIEN NODIG 0.1 MG
     Route: 055
     Dates: start: 2010
  5. METHYLFENIDAAT HCL SANDOZ [Suspect]
     Active Substance: METHYLPHENIDATE HYDROCHLORIDE
     Indication: ATTENTION DEFICIT HYPERACTIVITY DISORDER
     Dosage: 20 MG, QID 4X20MG
     Route: 048
     Dates: start: 2010
  6. DEPAKINE CHRONO [Suspect]
     Active Substance: VALPROATE SODIUM
     Indication: BIPOLAR I DISORDER
     Dosage: 1000 MG, BID 2 X 1000MG PER DAG
     Route: 048
     Dates: start: 20100825

REACTIONS (9)
  - Unresponsive to stimuli [Recovered/Resolved with Sequelae]
  - Abscess [Recovered/Resolved with Sequelae]
  - Obsessive-compulsive personality disorder [Recovering/Resolving]
  - Palpitations [Recovered/Resolved]
  - Increased appetite [Not Recovered/Not Resolved]
  - Depressed mood [Recovered/Resolved]
  - Rebound effect [Recovered/Resolved]
  - Suicidal ideation [Recovering/Resolving]
  - Anxiety [Recovered/Resolved]

NARRATIVE: CASE EVENT DATE: 2010
